FAERS Safety Report 10008846 (Version 2)
Quarter: 2014Q1

REPORT INFORMATION
  Report Type: Spontaneous
  Country: US (occurrence: US)
  Receive Date: 20140313
  Receipt Date: 20140313
  Transmission Date: 20141002
  Serious: No
  Sender: FDA-Public Use
  Company Number: US-INCYTE CORPORATION-2012IN000669

PATIENT
  Age: 69 Year
  Sex: Male

DRUGS (11)
  1. JAKAFI [Suspect]
     Indication: MYELOFIBROSIS
     Dosage: 10 MG, BID
     Route: 048
     Dates: start: 20120315
  2. JAKAFI [Suspect]
     Dosage: 5 MG, BID
     Route: 048
  3. CLONAZEPAM [Concomitant]
  4. CRESTOR [Concomitant]
  5. METOPROLOL [Concomitant]
  6. CYMBALTA [Concomitant]
  7. TAMSULOSIN [Concomitant]
  8. ZYPREXA [Concomitant]
  9. VITAMIN D [Concomitant]
  10. FISH OIL [Concomitant]
  11. CYMBALTA [Concomitant]

REACTIONS (3)
  - Liver tenderness [Unknown]
  - Blood triglycerides increased [Unknown]
  - Thrombocytopenia [Not Recovered/Not Resolved]
